FAERS Safety Report 7598327-8 (Version None)
Quarter: 2011Q3

REPORT INFORMATION
  Report Type: 
  Country: None (occurrence: None)
  Receive Date: 20110708
  Receipt Date: 20110628
  Transmission Date: 20111222
  Serious: Yes (Other)
  Sender: FDA-Public Use
  Company Number: PHHO2011AU11227

PATIENT
  Sex: Male
  Weight: 65 kg

DRUGS (6)
  1. MAGMIN [Concomitant]
  2. THIAMINE [Concomitant]
  3. RAMIPRIL [Concomitant]
  4. NEUROTON [Concomitant]
  5. OSTELIN [Concomitant]
  6. IMATINIB MESYLATE [Suspect]
     Indication: SCLERODERMA
     Dosage: 100 MG, DAILY
     Dates: start: 20100801

REACTIONS (1)
  - THYROIDITIS ACUTE [None]
